FAERS Safety Report 8488786-0 (Version None)
Quarter: 2012Q2

REPORT INFORMATION
  Report Type: 
  Country: None (occurrence: None)
  Receive Date: 20120626
  Receipt Date: 20120612
  Transmission Date: 20120825
  Serious: Yes (Other)
  Sender: FDA-Public Use
  Company Number: TCI2012A03121

PATIENT
  Age: 77 Year
  Sex: Female

DRUGS (3)
  1. AMOXICILLIN TRIHYDRATE [Suspect]
     Indication: HELICOBACTER INFECTION
     Dosage: PER ORAL
     Route: 048
  2. LANSOPRAZOLE [Suspect]
     Indication: GASTRIC ULCER
     Dosage: PER ORAL
     Route: 048
  3. CLARITHROMYCIN [Suspect]
     Indication: HELICOBACTER INFECTION
     Dosage: PER ORAL
     Route: 048

REACTIONS (2)
  - ORGANISING PNEUMONIA [None]
  - LYMPHOCYTE STIMULATION TEST POSITIVE [None]
